FAERS Safety Report 7688152-1 (Version None)
Quarter: 2011Q3

REPORT INFORMATION
  Report Type: 
  Country: None (occurrence: None)
  Receive Date: 20110817
  Receipt Date: 20110811
  Transmission Date: 20111222
  Serious: Yes (Hospitalization, Other)
  Sender: FDA-Public Use
  Company Number: US-ABBOTT-11P-163-0845726-00

PATIENT
  Sex: Male
  Weight: 67.646 kg

DRUGS (7)
  1. ASPIRIN [Concomitant]
     Indication: ARTHRITIS
  2. PENTASA [Concomitant]
     Indication: CROHN'S DISEASE
  3. MULTIVITAMIN WITH IRON [Concomitant]
     Indication: VITAMIN SUPPLEMENTATION
  4. IMURAN [Concomitant]
     Indication: CROHN'S DISEASE
  5. ASPIRIN [Concomitant]
     Indication: THROMBOSIS
  6. HUMIRA [Suspect]
     Indication: CROHN'S DISEASE
     Dates: start: 20110101, end: 20110615
  7. ZANTAC [Concomitant]
     Indication: FLATULENCE

REACTIONS (6)
  - LUNG DISORDER [None]
  - DIARRHOEA [None]
  - PYREXIA [None]
  - COUGH [None]
  - PRODUCTIVE COUGH [None]
  - ANAEMIA [None]
